FAERS Safety Report 4539328-3 (Version None)
Quarter: 2004Q4

REPORT INFORMATION
  Report Type: 
  Country: None (occurrence: None)
  Receive Date: 20041222
  Receipt Date: 20041214
  Transmission Date: 20050328
  Serious: Yes (Hospitalization, Other)
  Sender: FDA-Public Use
  Company Number: 2004110613

PATIENT
  Age: 68 Year
  Sex: Female

DRUGS (6)
  1. CARDURA XL [Suspect]
     Indication: HYPERTENSION
     Dosage: 4 MG (4 MG, 1 IN 1 D), ORAL
     Route: 048
     Dates: start: 20020101
  2. CELEBREX [Suspect]
     Indication: SPONDYLOSIS
     Dosage: 200 MG (200 MG, 1 IN 1 D), ORAL
     Route: 048
     Dates: start: 20040913, end: 20041019
  3. ALL OTHER THERAPEUTIC PRODUCTS [Concomitant]
  4. BISOPROLOL FUMARATE [Concomitant]
  5. INDAPAMIDE [Concomitant]
  6. ACETYLSALICYLIC ACID [Concomitant]

REACTIONS (5)
  - CONTUSION [None]
  - LOSS OF CONSCIOUSNESS [None]
  - RADICULOPATHY [None]
  - SPONDYLOSIS [None]
  - VERTEBROBASILAR INSUFFICIENCY [None]
